FAERS Safety Report 16494697 (Version 1)
Quarter: 2019Q2

REPORT INFORMATION
  Report Type: Spontaneous
  Country: DE (occurrence: DE)
  Receive Date: 20190628
  Receipt Date: 20190628
  Transmission Date: 20190711
  Serious: Yes (Hospitalization)
  Sender: FDA-Public Use
  Company Number: PHHY2019DE148618

PATIENT
  Age: 2 Year
  Sex: Male
  Weight: 11 kg

DRUGS (2)
  1. ADVANTAN [Concomitant]
     Active Substance: METHYLPREDNISOLONE ACEPONATE
     Indication: PRODUCT USED FOR UNKNOWN INDICATION
     Dosage: 0.1 %, UNK
     Route: 061
  2. ELTROMBOPAG [Suspect]
     Active Substance: ELTROMBOPAG
     Indication: PRODUCT USED FOR UNKNOWN INDICATION
     Dosage: 25 MG, QD
     Route: 048
     Dates: start: 201810

REACTIONS (1)
  - Tooth abscess [Recovered/Resolved]
